FAERS Safety Report 25021944 (Version 2)
Quarter: 2025Q1

REPORT INFORMATION
  Report Type: Report from Study
  Country: BR (occurrence: BR)
  Receive Date: 20250228
  Receipt Date: 20250305
  Transmission Date: 20250409
  Serious: No
  Sender: JOHNSON AND JOHNSON
  Company Number: BR-JNJFOC-20250153768

PATIENT
  Age: 58 Year
  Sex: Female
  Weight: 89 kg

DRUGS (8)
  1. TALVEY [Suspect]
     Active Substance: TALQUETAMAB-TGVS
     Indication: Plasma cell myeloma
     Route: 058
  2. ACYCLOVIR [Concomitant]
     Active Substance: ACYCLOVIR
     Indication: Herpes virus infection
  3. BACTRIM [Concomitant]
     Active Substance: SULFAMETHOXAZOLE\TRIMETHOPRIM
     Indication: Lung disorder
  4. OMEPRAZOLE [Concomitant]
     Active Substance: OMEPRAZOLE
     Indication: Gastrointestinal disorder
  5. FERITIN [FERRIC HYDROXIDE POLYMALTOSE COMPLEX] [Concomitant]
     Indication: Alopecia
  6. PREGABALIN [Concomitant]
     Active Substance: PREGABALIN
     Indication: Back pain
  7. IMECAP HAIR [Concomitant]
     Indication: Alopecia
  8. PANTOGAR [CALCIUM PANTOTHENATE;CYSTINE] [Concomitant]
     Indication: Alopecia

REACTIONS (12)
  - Onychomadesis [Recovered/Resolved]
  - Dry mouth [Recovering/Resolving]
  - Pruritus [Recovering/Resolving]
  - Alopecia [Unknown]
  - Inappropriate schedule of product administration [Unknown]
  - Fatigue [Recovering/Resolving]
  - Diarrhoea [Unknown]
  - Asthenia [Unknown]
  - Onychoclasis [Unknown]
  - Nail deformation [Unknown]
  - Nail disorder [Unknown]
  - Depressed mood [Recovered/Resolved]
